FAERS Safety Report 15408256 (Version 1)
Quarter: 2018Q3

REPORT INFORMATION
  Report Type: Spontaneous
  Country: US (occurrence: US)
  Receive Date: 20180920
  Receipt Date: 20180920
  Transmission Date: 20181010
  Serious: No
  Sender: FDA-Public Use
  Company Number: US-PERRIGO-18US007974

PATIENT
  Age: 24 Year
  Sex: Female
  Weight: 63.49 kg

DRUGS (3)
  1. LEVONORGESTREL. [Suspect]
     Active Substance: LEVONORGESTREL
     Dosage: 1.5 MG, SINGLE
     Route: 048
     Dates: start: 20180806, end: 20180806
  2. LEVONORGESTREL. [Suspect]
     Active Substance: LEVONORGESTREL
     Indication: CONTRACEPTION
     Dosage: 1.5 MG, SINGLE
     Route: 048
     Dates: start: 201806, end: 201806
  3. CONTRACEPTIVES [Concomitant]
     Active Substance: UNSPECIFIED INGREDIENT
     Indication: PROPHYLAXIS
     Dosage: UNK
     Route: 048
     Dates: start: 20180630, end: 20180803

REACTIONS (2)
  - Inappropriate schedule of drug administration [Recovered/Resolved]
  - Maternal exposure during pregnancy [Recovered/Resolved]

NARRATIVE: CASE EVENT DATE: 20180806
